FAERS Safety Report 9922487 (Version 1)
Quarter: 2014Q1

REPORT INFORMATION
  Report Type: Spontaneous
  Country: GB (occurrence: GB)
  Receive Date: 20140225
  Receipt Date: 20140225
  Transmission Date: 20141002
  Serious: Yes (Death, Hospitalization)
  Sender: FDA-Public Use
  Company Number: US-MILLENNIUM PHARMACEUTICALS, INC.-2014MPI000568

PATIENT
  Age: 79 Year
  Sex: Male
  Weight: 59.4 kg

DRUGS (2)
  1. VELCADE [Suspect]
     Indication: PLASMA CELL MYELOMA
     Dosage: 1.2 MG/M2, DAY 1, 4, 8, 11 EVERY 21 DAYS
     Route: 058
     Dates: start: 20130611, end: 20130920
  2. DEXAMETHASONE [Suspect]
     Indication: PLASMA CELL MYELOMA
     Dosage: 20 MG, DAYS 1, 2, 4, 5, 8, 9, 11, 12, EVERY 21 DAYS
     Route: 048
     Dates: start: 20130611, end: 20130920

REACTIONS (2)
  - Death [Fatal]
  - Liver function test abnormal [Unknown]
